FAERS Safety Report 6758288-8 (Version None)
Quarter: 2010Q2

REPORT INFORMATION
  Report Type: 
  Country: None (occurrence: None)
  Receive Date: 20100524
  Receipt Date: 20100413
  Transmission Date: 20101027
  Serious: No
  Sender: FDA-Public Use
  Company Number: 010172

PATIENT
  Age: 44 Year
  Sex: Female
  Weight: 67.5 kg

DRUGS (4)
  1. CIMZIA [Suspect]
     Indication: CROHN'S DISEASE
     Dosage: (SUBCUTANEOUS)
     Route: 058
     Dates: start: 20100101
  2. MESALAMINE [Concomitant]
  3. BENTYL [Concomitant]
  4. ZOLOFT [Concomitant]

REACTIONS (1)
  - OEDEMA [None]
